FAERS Safety Report 13433203 (Version 1)
Quarter: 2017Q2

REPORT INFORMATION
  Report Type: Report from Study
  Country: US (occurrence: US)
  Receive Date: 20170412
  Receipt Date: 20170412
  Transmission Date: 20170830
  Serious: Yes (Death, Life-Threatening, Hospitalization)
  Sender: FDA-Public Use
  Company Number: US-ACTELION-A-NJ2016-141512

PATIENT
  Age: 68 Year
  Sex: Male
  Weight: 136.5 kg

DRUGS (3)
  1. RIOCIGUAT [Concomitant]
     Active Substance: RIOCIGUAT
  2. OPSUMIT [Suspect]
     Active Substance: MACITENTAN
     Indication: PULMONARY ARTERIAL HYPERTENSION
     Dosage: 10 MG, QD
     Route: 048
     Dates: start: 20160114
  3. OPSUMIT [Suspect]
     Active Substance: MACITENTAN
     Dosage: UNK
     Route: 048
     Dates: start: 201403

REACTIONS (5)
  - Upper respiratory tract infection [Recovered/Resolved]
  - Respiratory failure [Unknown]
  - Pneumonia [Unknown]
  - Pulmonary hypertension [Fatal]
  - Unevaluable event [Unknown]

NARRATIVE: CASE EVENT DATE: 201608
